FAERS Safety Report 10019238 (Version 5)
Quarter: 2015Q1

REPORT INFORMATION
  Report Type: Report from Study
  Country: NZ (occurrence: NZ)
  Receive Date: 20140318
  Receipt Date: 20150128
  Transmission Date: 20150720
  Serious: Yes (Hospitalization)
  Sender: FDA-Public Use
  Company Number: NZ-SA-200217216GDDC

PATIENT
  Age: 38 Year
  Sex: Female
  Weight: 73 kg

DRUGS (15)
  1. CARBOPLATIN. [Suspect]
     Active Substance: CARBOPLATIN
     Indication: BREAST CANCER
     Dosage: DOSE AS USED: AUC=6
     Route: 042
     Dates: start: 20020730, end: 20020730
  2. DOMPERIDONE [Concomitant]
     Active Substance: DOMPERIDONE
     Route: 048
     Dates: start: 20020730, end: 20020730
  3. CIPROFLOXACIN. [Concomitant]
     Active Substance: CIPROFLOXACIN
     Route: 048
     Dates: start: 20020803, end: 20020812
  4. HERCEPTIN [Suspect]
     Active Substance: TRASTUZUMAB
     Indication: BREAST CANCER
     Route: 042
     Dates: start: 20020730, end: 20020730
  5. ZOPICLONE [Concomitant]
     Active Substance: ZOPICLONE
     Route: 048
     Dates: start: 200205
  6. ATENOLOL. [Concomitant]
     Active Substance: ATENOLOL
     Route: 048
     Dates: start: 200103
  7. LORAZEPAM. [Concomitant]
     Active Substance: LORAZEPAM
     Route: 048
     Dates: start: 20020730, end: 20020730
  8. DEXAMETHASONE. [Concomitant]
     Active Substance: DEXAMETHASONE
     Route: 048
     Dates: start: 20020729, end: 20020731
  9. ONDANSETRON [Concomitant]
     Active Substance: ONDANSETRON
     Route: 048
     Dates: start: 20020730, end: 20020802
  10. BENDROFLUAZIDE [Suspect]
     Active Substance: BENDROFLUMETHIAZIDE
     Route: 048
     Dates: start: 200104, end: 20020806
  11. BENDROFLUAZIDE [Suspect]
     Active Substance: BENDROFLUMETHIAZIDE
     Dates: start: 20020812
  12. NEUPOGEN [Concomitant]
     Active Substance: FILGRASTIM
     Route: 048
     Dates: start: 20020802, end: 20020808
  13. SLOW-K [Concomitant]
     Active Substance: POTASSIUM CHLORIDE
     Route: 048
     Dates: start: 20020807, end: 20020902
  14. DOCETAXEL. [Suspect]
     Active Substance: DOCETAXEL
     Indication: BREAST CANCER
     Route: 042
     Dates: start: 20020730, end: 20020730
  15. HERCEPTIN [Suspect]
     Active Substance: TRASTUZUMAB
     Indication: BREAST CANCER
     Route: 042
     Dates: start: 20020813, end: 20020813

REACTIONS (3)
  - Hypokalaemia [Recovered/Resolved]
  - Cellulitis [Recovered/Resolved]
  - Hypomagnesaemia [Recovered/Resolved]

NARRATIVE: CASE EVENT DATE: 20020806
